FAERS Safety Report 14961202 (Version 1)
Quarter: 2018Q2

REPORT INFORMATION
  Report Type: Spontaneous
  Country: US (occurrence: US)
  Receive Date: 20180601
  Receipt Date: 20180601
  Transmission Date: 20180711
  Serious: Yes (Life-Threatening)
  Sender: FDA-Public Use
  Company Number: US-CHARTWELL PHARMA-2048818

PATIENT
  Age: 40 Year
  Sex: Female

DRUGS (2)
  1. CIMETIDINE [Suspect]
     Active Substance: CIMETIDINE
     Indication: PRODUCT USED FOR UNKNOWN INDICATION
  2. LOPERAMIDE HYDROCHLORIDE. [Interacting]
     Active Substance: LOPERAMIDE HYDROCHLORIDE

REACTIONS (4)
  - Arrhythmia [Unknown]
  - Drug abuse [Unknown]
  - Toxicity to various agents [Unknown]
  - Drug interaction [Unknown]
